FAERS Safety Report 15897190 (Version 1)
Quarter: 2019Q1

REPORT INFORMATION
  Report Type: Spontaneous
  Country: US (occurrence: US)
  Receive Date: 20190131
  Receipt Date: 20190131
  Transmission Date: 20190417
  Serious: No
  Sender: FDA-Public Use
  Company Number: US-GLAXOSMITHKLINE-US2018GSK209845

PATIENT
  Age: 36 Year
  Sex: Female

DRUGS (1)
  1. BELIMUMAB SOLUTION FOR INFUSION [Suspect]
     Active Substance: BELIMUMAB
     Indication: SYSTEMIC LUPUS ERYTHEMATOSUS
     Dosage: UNK, CYC
     Route: 058

REACTIONS (8)
  - Headache [Unknown]
  - Pyrexia [Recovered/Resolved]
  - Malaise [Not Recovered/Not Resolved]
  - Nausea [Unknown]
  - Cold sweat [Unknown]
  - Hyperhidrosis [Unknown]
  - Impaired work ability [Recovered/Resolved]
  - Photophobia [Unknown]
